FAERS Safety Report 25680888 (Version 1)
Quarter: 2025Q3

REPORT INFORMATION
  Report Type: Spontaneous
  Country: US (occurrence: None)
  Receive Date: 20250813
  Receipt Date: 20250813
  Transmission Date: 20251021
  Serious: No
  Sender: FDA-CTU
  Company Number: None

PATIENT
  Age: 70 Year
  Sex: Female

DRUGS (2)
  1. LENALIDOMIDE [Suspect]
     Active Substance: LENALIDOMIDE
     Indication: Plasma cell myeloma
     Dosage: 10MG QD ORAL ?
     Route: 048
     Dates: start: 20241018
  2. TOLODODEKIN ALFA [Suspect]
     Active Substance: TOLODODEKIN ALFA

REACTIONS (5)
  - Chest pain [None]
  - Dyspnoea [None]
  - Pleural effusion [None]
  - Blood albumin decreased [None]
  - Cardiac disorder [None]

NARRATIVE: CASE EVENT DATE: 20250811
